FAERS Safety Report 20899153 (Version 1)
Quarter: 2022Q2

REPORT INFORMATION
  Report Type: Spontaneous
  Country: BH (occurrence: BH)
  Receive Date: 20220601
  Receipt Date: 20220601
  Transmission Date: 20220721
  Serious: Yes (Hospitalization, Other)
  Sender: FDA-Public Use
  Company Number: BH-NOVARTISPH-NVSC2022BH122216

PATIENT
  Sex: Male

DRUGS (2)
  1. ADAKVEO [Suspect]
     Active Substance: CRIZANLIZUMAB-TMCA
     Indication: Sickle cell disease
     Dosage: 460 MG, OTHER (VIAL) (LOADING DOSE WEEK 0, 2 AND THEN EVERY 4 WEEKS THEREAFTER)
     Route: 042
     Dates: start: 20220316, end: 20220316
  2. ADAKVEO [Suspect]
     Active Substance: CRIZANLIZUMAB-TMCA
     Dosage: 460 MG, OTHER (VIAL)
     Route: 042
     Dates: start: 20220511

REACTIONS (6)
  - Lower respiratory tract infection [Recovering/Resolving]
  - Tachycardia [Recovering/Resolving]
  - Oxygen saturation decreased [Recovering/Resolving]
  - Arthritis bacterial [Recovering/Resolving]
  - Sickle cell anaemia with crisis [Recovering/Resolving]
  - Oedema peripheral [Unknown]

NARRATIVE: CASE EVENT DATE: 20220522
